FAERS Safety Report 6930844-3 (Version None)
Quarter: 2010Q3

REPORT INFORMATION
  Report Type: 
  Country: None (occurrence: None)
  Receive Date: 20100818
  Receipt Date: 20100813
  Transmission Date: 20110219
  Serious: Yes (Death, Hospitalization)
  Sender: FDA-Public Use
  Company Number: BR-ABBOTT-10P-020-0663547-00

PATIENT
  Sex: Female
  Weight: 36 kg

DRUGS (3)
  1. AKINETON [Suspect]
     Indication: PARKINSON'S DISEASE
     Dosage: FORM STRENGTH: 2MG
     Route: 048
  2. INTRA [Concomitant]
     Indication: DEMENTIA ALZHEIMER'S TYPE
     Dosage: FORM STRENGTH: 25 MG
     Route: 048
  3. NISTATIN [Concomitant]
     Indication: PARKINSON'S DISEASE
     Dosage: FORM STRENGTH: 50 MG
     Route: 048

REACTIONS (6)
  - AMERICAN TRYPANOSOMIASIS [None]
  - ANAEMIA [None]
  - DECREASED APPETITE [None]
  - OEDEMA PERIPHERAL [None]
  - WEIGHT DECREASED [None]
  - WOUND [None]
